FAERS Safety Report 9766416 (Version 1)
Quarter: 2013Q4

REPORT INFORMATION
  Report Type: Spontaneous
  Country: US (occurrence: US)
  Receive Date: 20131217
  Receipt Date: 20131217
  Transmission Date: 20140711
  Serious: No
  Sender: FDA-Public Use
  Company Number: US-GLAXOSMITHKLINE-A1027261A

PATIENT
  Age: 63 Year
  Sex: Male

DRUGS (8)
  1. VOTRIENT [Suspect]
     Indication: RENAL CELL CARCINOMA
     Dosage: 800MG PER DAY
     Route: 048
     Dates: start: 201212
  2. LISINOPRIL [Concomitant]
  3. MORPHINE [Concomitant]
  4. OXYCODONE [Concomitant]
  5. HUMULIN N [Concomitant]
  6. GLIPIZIDE [Concomitant]
  7. OMEPRAZOLE [Concomitant]
  8. ASPIRIN [Concomitant]

REACTIONS (2)
  - Myalgia [Not Recovered/Not Resolved]
  - Gastrointestinal disorder [Unknown]
